FAERS Safety Report 7433116-6 (Version None)
Quarter: 2011Q2

REPORT INFORMATION
  Report Type: 
  Country: None (occurrence: None)
  Receive Date: 20110422
  Receipt Date: 20110412
  Transmission Date: 20111010
  Serious: Yes (Hospitalization, Other)
  Sender: FDA-Public Use
  Company Number: IN-PAR PHARMACEUTICAL, INC-2011SCPR002894

PATIENT
  Age: 65 Year
  Sex: Female
  Weight: 93 kg

DRUGS (5)
  1. LITHIUM [Suspect]
     Indication: BIPOLAR DISORDER
     Dosage: 900 MG, UNKNOWN
     Route: 048
  2. ELTROXIN [Concomitant]
     Indication: HYPOTHYROIDISM
     Dosage: 100 MCG, UNK
     Route: 048
  3. RISPERIDONE [Suspect]
     Indication: BIPOLAR DISORDER
     Dosage: 2 MG, UNKNOWN
     Route: 048
  4. ELTROXIN [Concomitant]
     Dosage: 200 MCG, OD
     Route: 048
  5. LITHIUM [Suspect]
     Dosage: 300 MG,OD
     Route: 048

REACTIONS (4)
  - DEPRESSED LEVEL OF CONSCIOUSNESS [None]
  - DECUBITUS ULCER [None]
  - RESPIRATORY FAILURE [None]
  - MUSCULAR WEAKNESS [None]
